FAERS Safety Report 14898706 (Version 6)
Quarter: 2019Q3

REPORT INFORMATION
  Report Type: Report from Study
  Country: US (occurrence: US)
  Receive Date: 20180515
  Receipt Date: 20190905
  Transmission Date: 20191004
  Serious: Yes (Hospitalization)
  Sender: FDA-Public Use
  Company Number: US-EXELIXIS-XL18418013949

PATIENT
  Age: 54 Year
  Sex: Male
  Weight: 85.7 kg

DRUGS (14)
  1. PAROXETINE. [Concomitant]
     Active Substance: PAROXETINE
  2. LEUPROLIDE [Concomitant]
     Active Substance: LEUPROLIDE
  3. TADALAFIL. [Concomitant]
     Active Substance: TADALAFIL
  4. ATEZOLIZUMAB. [Suspect]
     Active Substance: ATEZOLIZUMAB
     Indication: HORMONE-REFRACTORY PROSTATE CANCER
     Dosage: 1200 MG, Q3WEEKS
     Route: 042
     Dates: start: 20180424
  5. NAPROXEN. [Concomitant]
     Active Substance: NAPROXEN
  6. ALPRAZOLAM. [Concomitant]
     Active Substance: ALPRAZOLAM
  7. ESOMEPRAZOLE. [Concomitant]
     Active Substance: ESOMEPRAZOLE MAGNESIUM
  8. XL184 [Suspect]
     Active Substance: CABOZANTINIB
     Dosage: 20 MG, QD
     Route: 048
     Dates: start: 20180517
  9. PROBIOTIC [Concomitant]
     Active Substance: PROBIOTICS NOS
  10. VITAMIN B2 [Concomitant]
     Active Substance: RIBOFLAVIN
  11. XL184 [Suspect]
     Active Substance: CABOZANTINIB
     Indication: HORMONE-REFRACTORY PROSTATE CANCER
     Dosage: 40 MG, QD
     Route: 048
     Dates: start: 20180424, end: 20180505
  12. RIZATRIPTAN. [Concomitant]
     Active Substance: RIZATRIPTAN
  13. MULTIVITAMINS [Concomitant]
     Active Substance: VITAMINS
  14. TRAMADOL. [Concomitant]
     Active Substance: TRAMADOL

REACTIONS (3)
  - Infection [Recovered/Resolved]
  - Dyspnoea [Recovered/Resolved]
  - Chest pain [Recovering/Resolving]

NARRATIVE: CASE EVENT DATE: 20180505
